FAERS Safety Report 5254195-0 (Version None)
Quarter: 2007Q1

REPORT INFORMATION
  Report Type: 
  Country: None (occurrence: None)
  Receive Date: 20061201
  Receipt Date: 20060814
  Transmission Date: 20070707
  Serious: No
  Sender: FDA-Public Use
  Company Number: 2006PV019374

PATIENT
  Age: 55 Year
  Sex: Female
  Weight: 92.9874 kg

DRUGS (3)
  1. BYETTA [Suspect]
     Indication: DIABETES MELLITUS NON-INSULIN-DEPENDENT
     Dosage: SEE IMAGE
     Route: 058
     Dates: start: 20060708, end: 20060806
  2. BYETTA [Suspect]
     Indication: DIABETES MELLITUS NON-INSULIN-DEPENDENT
     Dosage: SEE IMAGE
     Route: 058
     Dates: start: 20060807
  3. METFORMIN HCL [Concomitant]

REACTIONS (3)
  - DRUG INEFFECTIVE FOR UNAPPROVED INDICATION [None]
  - INJECTION SITE RASH [None]
  - RASH PRURITIC [None]
